FAERS Safety Report 23677376 (Version 1)
Quarter: 2024Q1

REPORT INFORMATION
  Report Type: Spontaneous
  Country: US (occurrence: None)
  Receive Date: 20240326
  Receipt Date: 20240326
  Transmission Date: 20240409
  Serious: Yes (Disabling)
  Sender: FDA-Public Use
  Company Number: None

PATIENT
  Age: 64 Year
  Sex: Male
  Weight: 78.75 kg

DRUGS (13)
  1. EMGALITY [Suspect]
     Active Substance: GALCANEZUMAB-GNLM
     Indication: Migraine
     Dosage: OTHER FREQUENCY : MONTHLY;?
     Route: 058
     Dates: start: 20231226, end: 20240226
  2. METFORMIN [Concomitant]
     Active Substance: METFORMIN HYDROCHLORIDE
  3. PREDNISONE [Concomitant]
     Active Substance: PREDNISONE
  4. PANTOPRAZOLE [Concomitant]
     Active Substance: PANTOPRAZOLE
  5. ROSUVASTATIN [Concomitant]
     Active Substance: ROSUVASTATIN
  6. INDOMETHACIN [Concomitant]
     Active Substance: INDOMETHACIN
  7. Zolmitripan [Concomitant]
  8. DIPHENHYDRAMINE [Concomitant]
     Active Substance: DIPHENHYDRAMINE
  9. IBUPROFEN [Concomitant]
     Active Substance: IBUPROFEN
  10. MAGNESIUM [Concomitant]
     Active Substance: MAGNESIUM
  11. DIMETHYL SULFONE [Concomitant]
     Active Substance: DIMETHYL SULFONE
  12. MINERALS\VITAMINS [Concomitant]
     Active Substance: MINERALS\VITAMINS
  13. CHONDROITIN SULFATE (BOVINE)\GLUCOSAMINE HYDROCHLORIDE [Concomitant]
     Active Substance: CHONDROITIN SULFATE (BOVINE)\GLUCOSAMINE HYDROCHLORIDE

REACTIONS (11)
  - Feeling hot [None]
  - Feeling cold [None]
  - Chills [None]
  - Nausea [None]
  - Dizziness [None]
  - Tremor [None]
  - Abdominal pain [None]
  - Migraine [None]
  - Abdominal discomfort [None]
  - Brain fog [None]
  - Drug ineffective [None]

NARRATIVE: CASE EVENT DATE: 20240317
